FAERS Safety Report 8067496-8 (Version None)
Quarter: 2012Q1

REPORT INFORMATION
  Report Type: 
  Country: None (occurrence: None)
  Receive Date: 20120124
  Receipt Date: 20120120
  Transmission Date: 20120608
  Serious: Yes (Other)
  Sender: FDA-Public Use
  Company Number: US-PFIZER INC-2012017261

PATIENT
  Sex: Male
  Weight: 102.4 kg

DRUGS (2)
  1. ANBESOL MAXIMUM STRENGTH [Suspect]
     Indication: GINGIVAL INFECTION
     Dosage: UNK
     Route: 048
     Dates: end: 20120116
  2. ANBESOL MAXIMUM STRENGTH [Suspect]
     Indication: TOOTHACHE
     Dosage: UNK, 4X/DAY
     Route: 061
     Dates: start: 20120114

REACTIONS (3)
  - APPLICATION SITE DISCOLOURATION [None]
  - TOOTH INFECTION [None]
  - APPLICATION SITE PAIN [None]
